FAERS Safety Report 11647627 (Version 1)
Quarter: 2015Q4

REPORT INFORMATION
  Report Type: Spontaneous
  Country: US (occurrence: None)
  Receive Date: 20151020
  Receipt Date: 20151020
  Transmission Date: 20160304
  Serious: No
  Sender: FDA-Public Use
  Company Number: None

PATIENT
  Age: 73 Year
  Sex: Male

DRUGS (1)
  1. HUMIRA [Suspect]
     Active Substance: ADALIMUMAB
     Indication: PSORIASIS
     Dosage: FIRST SHIPPED ON 10/5/15
     Route: 058

REACTIONS (3)
  - Self-medication [None]
  - Ear infection [None]
  - Incorrect drug administration duration [None]

NARRATIVE: CASE EVENT DATE: 20151019
